FAERS Safety Report 23544305 (Version 2)
Quarter: 2024Q1

REPORT INFORMATION
  Report Type: Report from Study
  Country: JP (occurrence: JP)
  Receive Date: 20240220
  Receipt Date: 20240301
  Transmission Date: 20240410
  Serious: No
  Sender: FDA-Public Use
  Company Number: JP-002147023-NVSJ2021JP011213

PATIENT
  Age: 0 Year
  Sex: Male
  Weight: 2.7 kg

DRUGS (5)
  1. ZOLGENSMA [Suspect]
     Active Substance: ONASEMNOGENE ABEPARVOVEC-XIOI
     Indication: Spinal muscular atrophy
     Dosage: 16.5ML (1.1?1014VG/KG)
     Route: 042
     Dates: start: 20210716, end: 20210716
  2. PREDNISOLONE [Concomitant]
     Active Substance: PREDNISOLONE
     Indication: Product used for unknown indication
     Dosage: 1 MG/KG
     Route: 041
     Dates: start: 20210715, end: 20210716
  3. PREDNISOLONE [Concomitant]
     Active Substance: PREDNISOLONE
     Dosage: 1 MG/KG, QD
     Route: 048
     Dates: start: 20210717, end: 20210814
  4. PREDNISOLONE [Concomitant]
     Active Substance: PREDNISOLONE
     Dosage: 0.5 MG/KG, QD
     Route: 048
     Dates: start: 20210815, end: 20210828
  5. PREDNISOLONE [Concomitant]
     Active Substance: PREDNISOLONE
     Dosage: 0.25 MG/KG, QD
     Route: 048
     Dates: start: 20210829, end: 20210912

REACTIONS (11)
  - Hepatic enzyme increased [Recovered/Resolved]
  - Aspartate aminotransferase abnormal [Recovered/Resolved]
  - Alanine aminotransferase abnormal [Recovered/Resolved]
  - Troponin I increased [Recovered/Resolved]
  - Joint instability [Recovering/Resolving]
  - Rib deformity [Recovering/Resolving]
  - Muscular weakness [Recovering/Resolving]
  - Motor developmental delay [Recovering/Resolving]
  - Areflexia [Recovering/Resolving]
  - Drug ineffective [Recovering/Resolving]
  - Underweight [Not Recovered/Not Resolved]

NARRATIVE: CASE EVENT DATE: 20210720
